FAERS Safety Report 20165868 (Version 1)
Quarter: 2021Q4

REPORT INFORMATION
  Report Type: Spontaneous
  Country: US (occurrence: US)
  Receive Date: 20211209
  Receipt Date: 20211209
  Transmission Date: 20220303
  Serious: Yes (Death)
  Sender: FDA-Public Use
  Company Number: US-AMGEN-USASP2021192607

PATIENT

DRUGS (4)
  1. BEVACIZUMAB [Suspect]
     Active Substance: BEVACIZUMAB
     Indication: Desmoplastic small round cell tumour
     Dosage: UNK
     Route: 065
  2. TEMOZOLOMIDE [Concomitant]
     Active Substance: TEMOZOLOMIDE
     Indication: Desmoplastic small round cell tumour
  3. IRINOTECAN [Concomitant]
     Active Substance: IRINOTECAN
     Indication: Desmoplastic small round cell tumour
  4. NIVOLUMAB [Concomitant]
     Active Substance: NIVOLUMAB
     Indication: Desmoplastic small round cell tumour

REACTIONS (3)
  - Desmoplastic small round cell tumour [Fatal]
  - Drug effective for unapproved indication [Unknown]
  - Off label use [Unknown]
